FAERS Safety Report 5943339-0 (Version None)
Quarter: 2008Q4

REPORT INFORMATION
  Report Type: 
  Country: None (occurrence: None)
  Receive Date: 20081105
  Receipt Date: 20081105
  Transmission Date: 20090506
  Serious: Yes (Hospitalization)
  Sender: FDA-Public Use
  Company Number: None

PATIENT
  Age: 65 Year
  Sex: Male
  Weight: 92 kg

DRUGS (23)
  1. TEMSIROLIMUS (25 MG IV) [Suspect]
     Indication: COLORECTAL CANCER
     Dosage: 25 MG IV WEEKLY
     Route: 042
     Dates: start: 20081010, end: 20081024
  2. CETUXIMAB (400 MG/M2) [Suspect]
     Indication: COLORECTAL CANCER
     Dosage: 400 MG/M2 LOADING DOSE
     Dates: start: 20080926, end: 20080926
  3. CETUXIMAB (200 MG/ME) [Suspect]
     Indication: COLORECTAL CANCER
     Dosage: 200 MG/M2, WEEKLY, IV
     Route: 042
     Dates: start: 20081010, end: 20081024
  4. BACTRIM [Concomitant]
  5. COMBIVENT [Concomitant]
  6. DILTIZAEM [Concomitant]
  7. IMODIUM [Concomitant]
  8. KEFLEX [Concomitant]
  9. LOVENOX [Concomitant]
  10. MAGNESIUM GLUCONATE [Concomitant]
  11. MEGACE [Concomitant]
  12. METOPROLOL SUCCINATE [Concomitant]
  13. MAIR [Concomitant]
  14. MULTI-VITAMIN [Concomitant]
  15. OXYCONTIN [Concomitant]
  16. PERCOCET [Concomitant]
  17. PREDNISONE TAB [Concomitant]
  18. PROTONIX [Concomitant]
  19. SENOKOT [Concomitant]
  20. SIMVASTATIN [Concomitant]
  21. TESSALON [Concomitant]
  22. TRIPLE ANTIBIOTIC OINTMENT [Concomitant]
  23. ZOFRAN [Concomitant]

REACTIONS (1)
  - ATRIAL FIBRILLATION [None]
